FAERS Safety Report 22341068 (Version 1)
Quarter: 2023Q2

REPORT INFORMATION
  Report Type: Spontaneous
  Country: US (occurrence: US)
  Receive Date: 20230518
  Receipt Date: 20230518
  Transmission Date: 20230722
  Serious: No
  Sender: FDA-Public Use
  Company Number: US-PFIZER INC-2021620822

PATIENT
  Age: 15 Year
  Sex: Female

DRUGS (3)
  1. IBRANCE [Suspect]
     Active Substance: PALBOCICLIB
     Indication: Breast cancer female
     Dosage: TAKE 1 TABLET BY MOUTH DAILY ON DAYS 1 THRU 21, FOLLOWED BY 7 DAYS BREAK
     Route: 048
     Dates: start: 20210528
  2. IBRANCE [Suspect]
     Active Substance: PALBOCICLIB
     Indication: Ovarian germ cell teratoma
  3. IBRANCE [Suspect]
     Active Substance: PALBOCICLIB
     Indication: Ovarian cancer

REACTIONS (2)
  - Headache [Unknown]
  - Off label use [Unknown]
